FAERS Safety Report 8536835 (Version 2)
Quarter: 2015Q3

REPORT INFORMATION
  Report Type: Spontaneous
  Country: CA (occurrence: CA)
  Receive Date: 20120430
  Receipt Date: 20150723
  Transmission Date: 20151125
  Serious: Yes (Other)
  Sender: FDA-Public Use
  Company Number: CA-PFIZER INC-2012077352

PATIENT
  Age: 61 Year
  Sex: Male
  Weight: 109 kg

DRUGS (7)
  1. LYRICA [Suspect]
     Active Substance: PREGABALIN
     Dosage: 150 MG, 1X/DAY
     Route: 048
     Dates: end: 20120331
  2. ALTACE [Concomitant]
     Active Substance: RAMIPRIL
     Dosage: 10 MG, UNK
  3. METFORMIN [Concomitant]
     Active Substance: METFORMIN HYDROCHLORIDE
     Dosage: 500 MG, UNK
  4. NORVASC [Concomitant]
     Active Substance: AMLODIPINE BESYLATE
     Dosage: 10 MG, UNK
  5. APO-METOPROLOL [Concomitant]
     Dosage: 50 MG, UNK
  6. GLYBURIDE. [Concomitant]
     Active Substance: GLYBURIDE
     Dosage: 10 MG, UNK
  7. LYRICA [Suspect]
     Active Substance: PREGABALIN
     Indication: NEUROPATHY PERIPHERAL
     Dosage: 50 MG, UNK
     Route: 048
     Dates: start: 201103

REACTIONS (11)
  - Hypoaesthesia [Recovered/Resolved]
  - Pain [Recovered/Resolved]
  - Paraesthesia [Recovered/Resolved]
  - Sedation [Recovered/Resolved]
  - Somnolence [Unknown]
  - Euphoric mood [Recovered/Resolved]
  - Dizziness [Unknown]
  - Incoherent [Unknown]
  - Impaired driving ability [Recovered/Resolved]
  - Disturbance in attention [Recovered/Resolved]
  - Personality disorder [Unknown]

NARRATIVE: CASE EVENT DATE: 20120326
